FAERS Safety Report 8743616 (Version 2)
Quarter: 2012Q4

REPORT INFORMATION
  Report Type: 
  Country: MX (occurrence: MX)
  Receive Date: 20120824
  Receipt Date: 20121002
  Transmission Date: 20130627
  Serious: Yes (Hospitalization)
  Sender: FDA-Public Use
  Company Number: MX-ELI_LILLY_AND_COMPANY-MX201208005129

PATIENT
  Age: 22 Year
  Sex: Male

DRUGS (10)
  1. HUMALOG LISPRO [Suspect]
     Dosage: 6 IU, each morning
     Dates: start: 2008
  2. HUMALOG LISPRO [Suspect]
     Dosage: 6 IU, qd
  3. HUMALOG LISPRO [Suspect]
     Dosage: 4 IU, each evening
  4. HUMULIN NPH [Suspect]
     Dosage: UNK
     Dates: start: 2008
  5. OROXADIN [Concomitant]
  6. COZAAR [Concomitant]
  7. AVANDAMET [Concomitant]
  8. DABEX [Concomitant]
  9. LANTUS [Concomitant]
     Dosage: 30 IU, each evening
  10. LANTUS [Concomitant]
     Dosage: 20 IU, each morning

REACTIONS (3)
  - Gastrointestinal bacterial infection [Recovering/Resolving]
  - Fluid retention [Unknown]
  - Pharyngitis [Unknown]
